FAERS Safety Report 23697925 (Version 2)
Quarter: 2024Q2

REPORT INFORMATION
  Report Type: Report from Study
  Country: PT (occurrence: PT)
  Receive Date: 20240402
  Receipt Date: 20240405
  Transmission Date: 20240716
  Serious: Yes (Hospitalization)
  Sender: FDA-Public Use
  Company Number: PT-ABBVIE-5700636

PATIENT
  Age: 74 Year
  Sex: Female

DRUGS (10)
  1. CARBIDOPA\LEVODOPA [Suspect]
     Active Substance: CARBIDOPA\LEVODOPA
     Indication: Multiple system atrophy
     Dosage: 20 MG + 5 MG?MORN:11CC;MAIN:3.2CC/H;EXTRA:4CC
     Route: 050
     Dates: start: 20240327
  2. CARBIDOPA\LEVODOPA [Suspect]
     Active Substance: CARBIDOPA\LEVODOPA
     Dosage: 20 MG + 5 MG, THERAPY END DATE MAR 2024?MORN:11CC;MAIN:3.2CC/H;EXTRA:4CC
     Route: 050
     Dates: start: 20240306, end: 202403
  3. CARBIDOPA\LEVODOPA [Suspect]
     Active Substance: CARBIDOPA\LEVODOPA
     Dosage: 20 MG + 5 MG, THERAPY START DATE MAR 2024?MORN:7CC;MAIN:2.6CC/H;EXTRA:1CC
     Route: 050
     Dates: start: 202403, end: 20240327
  4. CLONAZEPAM [Concomitant]
     Active Substance: CLONAZEPAM
     Indication: Product used for unknown indication
     Dosage: 1 TABLET, 0.5 MILLIGRAM BEFORE DUODOPA AT BEDTIME
  5. BETAHISTINE HYDROCHLORIDE [Concomitant]
     Active Substance: BETAHISTINE HYDROCHLORIDE
     Indication: Product used for unknown indication
     Dosage: 2 TABLET 24 MILLIGRAM, START DATE BEFORE DUODOPA
  6. SINEMET CR [Concomitant]
     Active Substance: CARBIDOPA\LEVODOPA
     Indication: Multiple system atrophy
     Dosage: 1 TABLET, 200/50 AT BEDTIME START DATE BEFORE DUODOPA
  7. PANTOPRAZOLE [Concomitant]
     Active Substance: PANTOPRAZOLE
     Indication: Product used for unknown indication
     Dosage: 2 TABLET, 20 MILLIGRAM, START DATE BEFORE DUODOPA
  8. LEVETIRACETAM [Concomitant]
     Active Substance: LEVETIRACETAM
     Indication: Status epilepticus
     Dosage: 2 TABLET,500 MILLIGRAM, START DATE BEFORE DUODOPA
  9. CHOLECALCIFEROL [Concomitant]
     Active Substance: CHOLECALCIFEROL
     Indication: Product used for unknown indication
     Dosage: 22400 U/MONTH, START DATE BEFORE DUODOPA
  10. SERTRALINE [Concomitant]
     Active Substance: SERTRALINE HYDROCHLORIDE
     Indication: Depression
     Dosage: 1 TABLET, 50 MILLIGRAM IN THE MORNING, START DATE BEFORE DUODOPA

REACTIONS (2)
  - Abdominal pain [Recovered/Resolved]
  - Constipation [Recovered/Resolved]

NARRATIVE: CASE EVENT DATE: 20240326
